FAERS Safety Report 10739148 (Version 7)
Quarter: 2016Q3

REPORT INFORMATION
  Report Type: Report from Study
  Country: IL (occurrence: IL)
  Receive Date: 20150126
  Receipt Date: 20160718
  Transmission Date: 20161109
  Serious: Yes (Death, Hospitalization, Congenital Anomaly, Other)
  Sender: FDA-Public Use
  Company Number: IL-ABBVIE-15P-082-1335905-00

PATIENT
  Age: 83 Year
  Sex: Female

DRUGS (1)
  1. DUODOPA [Suspect]
     Active Substance: CARBIDOPA\LEVODOPA
     Indication: PARKINSON^S DISEASE
     Dosage: 4.2 ML
     Route: 050
     Dates: start: 2014

REACTIONS (20)
  - Burn infection [Not Recovered/Not Resolved]
  - On and off phenomenon [Unknown]
  - Muscle spasticity [Not Recovered/Not Resolved]
  - Confusional state [Not Recovered/Not Resolved]
  - Death [Fatal]
  - Thermal burn [Recovered/Resolved]
  - Electrocution [Unknown]
  - Gangrene [Not Recovered/Not Resolved]
  - Cognitive disorder [Unknown]
  - Localised infection [Unknown]
  - Cellulitis [Unknown]
  - Device occlusion [Recovered/Resolved]
  - Mobility decreased [Unknown]
  - Depressed mood [Unknown]
  - Decubitus ulcer [Unknown]
  - Mood altered [Not Recovered/Not Resolved]
  - Weight decreased [Not Recovered/Not Resolved]
  - Device alarm issue [Unknown]
  - Depression [Unknown]
  - Thermal burn [Not Recovered/Not Resolved]

NARRATIVE: CASE EVENT DATE: 201501
